FAERS Safety Report 4885535-X (Version None)
Quarter: 2005Q4

REPORT INFORMATION
  Report Type: 
  Country: None (occurrence: None)
  Receive Date: 20051220
  Receipt Date: 20041122
  Transmission Date: 20060501
  Serious: Yes (Other)
  Sender: FDA-Public Use
  Company Number: HQWYE638723NOV04

PATIENT
  Age: 24 Year
  Sex: Male

DRUGS (1)
  1. EFFEXOR XR [Suspect]
     Dosage: DAILY (75 SUSPECTED), ORAL
     Route: 048

REACTIONS (1)
  - CONVULSION [None]
